FAERS Safety Report 21077122 (Version 1)
Quarter: 2022Q3

REPORT INFORMATION
  Report Type: Spontaneous
  Country: GB (occurrence: GB)
  Receive Date: 20220713
  Receipt Date: 20220713
  Transmission Date: 20221027
  Serious: Yes (Hospitalization, Other)
  Sender: FDA-Public Use
  Company Number: None

PATIENT
  Age: 69 Year
  Sex: Male

DRUGS (13)
  1. PIPERACILLIN SODIUM\TAZOBACTAM SODIUM [Suspect]
     Active Substance: PIPERACILLIN SODIUM\TAZOBACTAM SODIUM
     Dosage: 4.5 MG
     Route: 042
     Dates: start: 20220204, end: 20220204
  2. GAVISCON ADVANCED [Concomitant]
  3. METFORMIN [Concomitant]
     Active Substance: METFORMIN HYDROCHLORIDE
     Dosage: 500 MG, 2X/DAY
  4. OMEPRAZOLE [Concomitant]
     Active Substance: OMEPRAZOLE
  5. ATORVASTATIN [Concomitant]
     Active Substance: ATORVASTATIN
  6. IRBESARTAN [Concomitant]
     Active Substance: IRBESARTAN
  7. GLIMEPIRIDE [Concomitant]
     Active Substance: GLIMEPIRIDE
  8. INDAPAMIDE [Concomitant]
     Active Substance: INDAPAMIDE
     Dosage: EACH MORNING
  9. SITAGLIPTIN [Concomitant]
     Active Substance: SITAGLIPTIN
  10. OXYBUTYNIN [Concomitant]
     Active Substance: OXYBUTYNIN
     Dosage: INCREASED IF TOLERATED TO 5 MG TWICE DAILY
  11. ACETAMINOPHEN [Concomitant]
     Active Substance: ACETAMINOPHEN
     Dosage: TAKEN EVERY 4-6 HOURS UP TO FOUR TIMES A DAY
  12. SOLIFENACIN [Concomitant]
     Active Substance: SOLIFENACIN
  13. TAMSULOSIN [Concomitant]
     Active Substance: TAMSULOSIN

REACTIONS (5)
  - Anaphylactic reaction [Recovered/Resolved]
  - Swelling face [Recovered/Resolved]
  - Wheezing [Recovered/Resolved]
  - Pruritus [Recovered/Resolved]
  - Hypotension [Recovered/Resolved]

NARRATIVE: CASE EVENT DATE: 20220204
